FAERS Safety Report 21791248 (Version 1)
Quarter: 2022Q4

REPORT INFORMATION
  Report Type: Spontaneous
  Country: US (occurrence: None)
  Receive Date: 20221227
  Receipt Date: 20221227
  Transmission Date: 20230113
  Serious: Yes (Death)
  Sender: FDA-Public Use
  Company Number: None

PATIENT
  Sex: Female

DRUGS (1)
  1. PROLIA [Suspect]
     Active Substance: DENOSUMAB
     Indication: Osteoporosis
     Dosage: 60 MG/ML  SUBCUTANEOUS??INJECT 1 SYRINGE UNDER THE SKIN (SUBCUTANEOUS INJECTION) ONCE EVERY 6 MONTH
     Route: 058
     Dates: start: 20220701

REACTIONS (1)
  - Death [None]
